FAERS Safety Report 11218460 (Version 1)
Quarter: 2015Q2

REPORT INFORMATION
  Report Type: Spontaneous
  Country: US (occurrence: US)
  Receive Date: 20150625
  Receipt Date: 20150625
  Transmission Date: 20150821
  Serious: No
  Sender: FDA-Public Use
  Company Number: US-PFIZER INC-2015208854

PATIENT
  Age: 64 Year
  Sex: Female
  Weight: 57 kg

DRUGS (2)
  1. XALATAN [Suspect]
     Active Substance: LATANOPROST
     Indication: GLAUCOMA
     Dosage: 1 DROP EACH EYE AT BEDTIME
  2. XALATAN [Suspect]
     Active Substance: LATANOPROST
     Indication: CATARACT

REACTIONS (3)
  - Wrong technique in drug usage process [Unknown]
  - Visual acuity reduced [Unknown]
  - Product use issue [Unknown]
